FAERS Safety Report 9706249 (Version 2)
Quarter: 2013Q4

REPORT INFORMATION
  Report Type: Report from Study
  Country: JP (occurrence: JP)
  Receive Date: 20131125
  Receipt Date: 20131228
  Transmission Date: 20140711
  Serious: Yes (Death)
  Sender: FDA-Public Use
  Company Number: JP-ROCHE-1304816

PATIENT
  Age: 89 Year
  Sex: Female
  Weight: 43 kg

DRUGS (3)
  1. METHOXY POLYETHYLENE GLYCOL-EPOETIN BETA [Suspect]
     Indication: NEPHROGENIC ANAEMIA
     Route: 042
     Dates: start: 20120929, end: 20130309
  2. TAKEPRON [Concomitant]
     Route: 048
  3. LASIX [Concomitant]
     Route: 048

REACTIONS (1)
  - Azotaemia [Fatal]
